FAERS Safety Report 14739565 (Version 2)
Quarter: 2018Q2

REPORT INFORMATION
  Report Type: Spontaneous
  Country: JP (occurrence: JP)
  Receive Date: 20180410
  Receipt Date: 20180503
  Transmission Date: 20180711
  Serious: Yes (Congenital Anomaly)
  Sender: FDA-Public Use
  Company Number: JP-CONCORDIA PHARMACEUTICALS INC.-E2B_00010808

PATIENT
  Sex: Male
  Weight: 2.76 kg

DRUGS (8)
  1. ZONISAMIDE CAPSULE [Suspect]
     Active Substance: ZONISAMIDE
     Route: 064
     Dates: end: 2016
  2. ZONISAMIDE CAPSULE [Suspect]
     Active Substance: ZONISAMIDE
     Route: 064
     Dates: start: 2016, end: 2016
  3. MYSTAN [Suspect]
     Active Substance: CLOBAZAM
     Route: 064
     Dates: start: 2016, end: 2016
  4. VALERIN [Suspect]
     Active Substance: VALPROATE SODIUM
     Route: 064
  5. ZONISAMIDE CAPSULE [Suspect]
     Active Substance: ZONISAMIDE
     Route: 064
     Dates: start: 2016, end: 2016
  6. MYSTAN [Suspect]
     Active Substance: CLOBAZAM
     Route: 064
     Dates: start: 2016, end: 2016
  7. VALERIN [Suspect]
     Active Substance: VALPROATE SODIUM
     Route: 064
     Dates: start: 2016, end: 2016
  8. VALERIN [Suspect]
     Active Substance: VALPROATE SODIUM
     Route: 064
     Dates: start: 2016, end: 2016

REACTIONS (5)
  - Hemivertebra [Not Recovered/Not Resolved]
  - Intellectual disability [Not Recovered/Not Resolved]
  - Hypothyroidism [Not Recovered/Not Resolved]
  - Foetal exposure during pregnancy [Not Recovered/Not Resolved]
  - Thyroglossal cyst [Not Recovered/Not Resolved]

NARRATIVE: CASE EVENT DATE: 2016
